FAERS Safety Report 7471586-8 (Version None)
Quarter: 2011Q2

REPORT INFORMATION
  Report Type: 
  Country: None (occurrence: None)
  Receive Date: 20110511
  Receipt Date: 20110328
  Transmission Date: 20111010
  Serious: Yes (Other)
  Sender: FDA-Public Use
  Company Number: US-BAYER-201011114NA

PATIENT
  Age: 25 Year
  Sex: Female
  Weight: 86 kg

DRUGS (7)
  1. ZOLOFT [Concomitant]
     Dates: start: 20080101, end: 20100615
  2. ORTHO CYCLEN-28 [Concomitant]
  3. YAZ [Suspect]
     Indication: PRODUCT USED FOR UNKNOWN INDICATION
     Dosage: UNK
     Route: 048
     Dates: start: 20000101, end: 20080501
  4. XANAX [Concomitant]
     Dates: start: 20080101, end: 20100615
  5. SPRINTEC [Concomitant]
     Indication: ORAL CONTRACEPTION
     Dosage: UNK
     Route: 048
     Dates: start: 20080101, end: 20100101
  6. TOPAMAX [Concomitant]
     Indication: HEADACHE
  7. YASMIN [Suspect]
     Indication: CONTRACEPTION
     Dosage: UNK
     Route: 048
     Dates: start: 19990101, end: 20080101

REACTIONS (7)
  - GALLBLADDER DISORDER [None]
  - ROAD TRAFFIC ACCIDENT [None]
  - ANXIETY [None]
  - INJURY [None]
  - PAIN [None]
  - MENTAL DISORDER [None]
  - SYNCOPE [None]
